FAERS Safety Report 23631898 (Version 1)
Quarter: 2024Q1

REPORT INFORMATION
  Report Type: Report from Study
  Country: US (occurrence: US)
  Receive Date: 20240314
  Receipt Date: 20240314
  Transmission Date: 20240409
  Serious: Yes (Other)
  Sender: FDA-Public Use
  Company Number: US-ABBVIE-5675873

PATIENT
  Age: 68 Year
  Sex: Female

DRUGS (2)
  1. SKYRIZI [Suspect]
     Active Substance: RISANKIZUMAB-RZAA
     Indication: Psoriasis
     Dosage: FORM STRENGTH: 150MG?FREQUENCY TEXT: WEEK 0
     Route: 058
     Dates: start: 20240201, end: 20240201
  2. SKYRIZI [Suspect]
     Active Substance: RISANKIZUMAB-RZAA
     Dosage: FORM STRENGTH: 150MG?FREQUENCY TEXT: WEEK 4
     Route: 058
     Dates: start: 20240301

REACTIONS (1)
  - Accident at work [Unknown]

NARRATIVE: CASE EVENT DATE: 20240226
